FAERS Safety Report 15827192 (Version 6)
Quarter: 2019Q3

REPORT INFORMATION
  Report Type: Report from Study
  Country: None (occurrence: US)
  Receive Date: 20190115
  Receipt Date: 20190830
  Transmission Date: 20191004
  Serious: Yes (Hospitalization)
  Sender: FDA-Public Use
  Company Number: US-ABBVIE-19K-163-2625265-00

PATIENT
  Age: 37 Year
  Sex: Female
  Weight: 61.29 kg

DRUGS (7)
  1. HUMIRA [Suspect]
     Active Substance: ADALIMUMAB
     Dosage: DAY 15
     Route: 058
     Dates: start: 20181024, end: 20181024
  2. OXYCODONE [Concomitant]
     Active Substance: OXYCODONE
     Indication: PRODUCT USED FOR UNKNOWN INDICATION
  3. PROBIOTIC [Concomitant]
     Active Substance: PROBIOTICS NOS
     Indication: PRODUCT USED FOR UNKNOWN INDICATION
  4. IMODIUM [Concomitant]
     Active Substance: LOPERAMIDE HYDROCHLORIDE
     Indication: PRODUCT USED FOR UNKNOWN INDICATION
  5. HUMIRA [Suspect]
     Active Substance: ADALIMUMAB
     Indication: CROHN^S DISEASE
     Dosage: DAY 1
     Route: 058
     Dates: start: 20181010, end: 20181010
  6. HUMIRA [Suspect]
     Active Substance: ADALIMUMAB
     Dosage: FROM DAY 29
     Route: 058
     Dates: start: 20181107, end: 201903
  7. HUMIRA [Suspect]
     Active Substance: ADALIMUMAB
     Route: 058
     Dates: start: 201903

REACTIONS (16)
  - Dyschezia [Unknown]
  - Volvulus [Recovered/Resolved]
  - Insomnia [Unknown]
  - Paraesthesia [Not Recovered/Not Resolved]
  - Feeling abnormal [Recovering/Resolving]
  - Urinary tract infection [Recovered/Resolved]
  - Pyrexia [Not Recovered/Not Resolved]
  - Small intestinal obstruction [Recovered/Resolved]
  - Intestinal dilatation [Recovered/Resolved]
  - Abdominal distension [Unknown]
  - Fear of injection [Recovering/Resolving]
  - Haemorrhoids [Unknown]
  - Diarrhoea [Unknown]
  - Nausea [Unknown]
  - Myalgia [Unknown]
  - Migraine [Recovered/Resolved with Sequelae]

NARRATIVE: CASE EVENT DATE: 201810
